FAERS Safety Report 5430846-2 (Version None)
Quarter: 2007Q3

REPORT INFORMATION
  Report Type: 
  Country: None (occurrence: None)
  Receive Date: 20070830
  Receipt Date: 20061214
  Transmission Date: 20080115
  Serious: No
  Sender: FDA-Public Use
  Company Number: A0631601A

PATIENT
  Age: 39 Year
  Sex: Female

DRUGS (1)
  1. WELLBUTRIN XL [Suspect]
     Dosage: 150MG VARIABLE DOSE
     Route: 048
     Dates: start: 20061025

REACTIONS (4)
  - ANXIETY [None]
  - CONSTIPATION [None]
  - NAUSEA [None]
  - VOMITING [None]
